FAERS Safety Report 17186313 (Version 1)
Quarter: 2019Q4

REPORT INFORMATION
  Report Type: Report from Study
  Country: FR (occurrence: FR)
  Receive Date: 20191220
  Receipt Date: 20191220
  Transmission Date: 20200122
  Serious: Yes (Death, Other)
  Sender: FDA-Public Use
  Company Number: FR-PFIZER INC-2019546364

PATIENT
  Age: 70 Year
  Sex: Female
  Weight: 93 kg

DRUGS (2)
  1. EVEROLIMUS. [Suspect]
     Active Substance: EVEROLIMUS
     Indication: BREAST CANCER METASTATIC
     Dosage: 10 MG, DAILY
     Route: 048
     Dates: start: 20170907, end: 20180309
  2. EXEMESTANE. [Suspect]
     Active Substance: EXEMESTANE
     Indication: BREAST CANCER METASTATIC
     Dosage: 25 MG, DAILY
     Route: 048
     Dates: start: 20170907

REACTIONS (4)
  - Mucosal inflammation [Not Recovered/Not Resolved]
  - Anaemia [Not Recovered/Not Resolved]
  - Bronchitis [Not Recovered/Not Resolved]
  - Neoplasm progression [Fatal]

NARRATIVE: CASE EVENT DATE: 20180308
